FAERS Safety Report 24012156 (Version 1)
Quarter: 2024Q2

REPORT INFORMATION
  Report Type: Spontaneous
  Country: US (occurrence: US)
  Receive Date: 20240625
  Receipt Date: 20240625
  Transmission Date: 20240715
  Serious: No
  Sender: FDA-Public Use
  Company Number: US-SA-SAC20240619001214

PATIENT
  Sex: Female

DRUGS (1)
  1. KEVZARA [Suspect]
     Active Substance: SARILUMAB
     Indication: Hypothyroidism
     Dosage: 200 MG, QOW
     Route: 058

REACTIONS (4)
  - Peripheral swelling [Unknown]
  - Rhinorrhoea [Unknown]
  - Nasal congestion [Unknown]
  - Product use in unapproved indication [Unknown]
